FAERS Safety Report 6370813-8 (Version None)
Quarter: 2009Q3

REPORT INFORMATION
  Report Type: 
  Country: None (occurrence: None)
  Receive Date: 20090923
  Receipt Date: 20070511
  Transmission Date: 20100115
  Serious: Yes (Hospitalization)
  Sender: FDA-Public Use
  Company Number: US-ASTRAZENECA-2006UW24925

PATIENT
  Age: 516 Month
  Sex: Female
  Weight: 152.9 kg

DRUGS (35)
  1. SEROQUEL [Suspect]
     Indication: BIPOLAR DISORDER
     Route: 048
     Dates: start: 19990501
  2. SEROQUEL [Suspect]
     Indication: SCHIZOPHRENIA
     Route: 048
     Dates: start: 19990501
  3. SEROQUEL [Suspect]
     Dosage: 25 MG-400 MG
     Route: 048
     Dates: start: 20001117
  4. SEROQUEL [Suspect]
     Dosage: 25 MG-400 MG
     Route: 048
     Dates: start: 20001117
  5. ZYPREXA [Suspect]
     Dates: start: 19970701, end: 19990201
  6. ZYPREXA [Suspect]
     Dosage: 7.5 MG-15 MG
     Route: 048
  7. NORVASC [Concomitant]
  8. LISINOPRIL [Concomitant]
  9. HYDROCHLOROTHIAZIDE [Concomitant]
  10. AUGMENTIN PO [Concomitant]
  11. ZOFRAN [Concomitant]
  12. ALBUTEROL MD INHALER [Concomitant]
  13. DIFLUCAN [Concomitant]
  14. ROBITUSSIN A-C [Concomitant]
  15. INSULIN, HUMAN REGULAR [Concomitant]
  16. SODIUM CHLORIDE INJ [Concomitant]
  17. LIPITOR [Concomitant]
  18. ENALAPRIL MALEATE [Concomitant]
  19. CHLOROCON [Concomitant]
  20. GLUCOTROL [Concomitant]
  21. GLUCOPHAGE [Concomitant]
  22. ZOCOR [Concomitant]
  23. HEPARIN SODIUM [Concomitant]
  24. PEPCID [Concomitant]
  25. DUONEB [Concomitant]
  26. PREDNISONE [Concomitant]
  27. CLONIDINE [Concomitant]
  28. TYLENOL (CAPLET) [Concomitant]
  29. KEFLEX [Concomitant]
  30. COUMADIN [Concomitant]
  31. LOPRESSOR [Concomitant]
  32. SOLU-MEDROL [Concomitant]
  33. DEPAKOTE [Concomitant]
  34. XOPENEX [Concomitant]
  35. FLAGYL [Concomitant]

REACTIONS (5)
  - ABDOMINAL PAIN [None]
  - ABDOMINAL PAIN UPPER [None]
  - DIABETES MELLITUS [None]
  - HYPERGLYCAEMIA [None]
  - PYREXIA [None]
